FAERS Safety Report 9062749 (Version 2)
Quarter: 2014Q1

REPORT INFORMATION
  Report Type: Spontaneous
  Country: US (occurrence: US)
  Receive Date: 20130128
  Receipt Date: 20140221
  Transmission Date: 20141002
  Serious: Yes (Life-Threatening, Hospitalization, Disabling)
  Sender: FDA-Public Use
  Company Number: US-BAYER-2013-010698

PATIENT
  Age: 43 Year
  Sex: Female
  Weight: 97.5 kg

DRUGS (16)
  1. YAZ [Suspect]
     Indication: CONTRACEPTION
  2. YAZ [Suspect]
     Indication: MENORRHAGIA
  3. YAZ [Suspect]
     Indication: DYSMENORRHOEA
  4. YASMIN [Suspect]
  5. OCELLA [Suspect]
  6. GIANVI [Suspect]
  7. BEYAZ [Suspect]
  8. SAFYRAL [Suspect]
  9. ZARAH [Suspect]
  10. ZYRTEC [Concomitant]
  11. CLARITIN [Concomitant]
     Dosage: QD, AS NEEDED
  12. NASONEX [Concomitant]
     Dosage: 50 ?G, 2 SPRAYS EACH NOSTRIL
  13. VALTREX [Concomitant]
     Dosage: 500 MG, UNK
  14. FLONASE [Concomitant]
     Dosage: 50 ?G, 2 SPRAYS EACH NOSTRIL DAILY
  15. CHLORPHEN.MA.W/PHENYLEPH.HCL/DEX.METHORP.HBR [Concomitant]
     Dosage: 5 ML, EVERY 6 HOURS AS NEEDED
  16. AZITHROMYCIN [Concomitant]
     Dosage: 250 MG, TWO TABLETS TODAY, THEN ONE TABLET DAILY FOR 5 DAYS

REACTIONS (8)
  - Deep vein thrombosis [None]
  - Injury [None]
  - Pain [None]
  - General physical health deterioration [None]
  - Anxiety [None]
  - Anhedonia [None]
  - Emotional distress [None]
  - Pain [None]
